FAERS Safety Report 24549391 (Version 1)
Quarter: 2024Q4

REPORT INFORMATION
  Report Type: Spontaneous
  Country: DE (occurrence: DE)
  Receive Date: 20241025
  Receipt Date: 20241025
  Transmission Date: 20250114
  Serious: Yes (Other)
  Sender: MYLAN
  Company Number: None

PATIENT
  Age: 77 Year
  Sex: Female
  Weight: 60 kg

DRUGS (2)
  1. ATORVASTATIN [Suspect]
     Active Substance: ATORVASTATIN
     Indication: Arteriosclerosis
     Dosage: 40 MILLIGRAM
     Route: 048
     Dates: start: 20240615, end: 20240623
  2. ATORVASTATIN [Suspect]
     Active Substance: ATORVASTATIN
     Indication: Endarterectomy

REACTIONS (10)
  - Cholestasis [Recovering/Resolving]
  - Steatorrhoea [Recovering/Resolving]
  - Thirst [Recovering/Resolving]
  - Chromaturia [Recovering/Resolving]
  - Pruritus [Recovering/Resolving]
  - Jaundice [Recovering/Resolving]
  - Decreased appetite [Recovering/Resolving]
  - Transaminases increased [Recovering/Resolving]
  - Fatigue [Recovering/Resolving]
  - Nausea [Recovering/Resolving]

NARRATIVE: CASE EVENT DATE: 20240620
